FAERS Safety Report 5622088-2 (Version None)
Quarter: 2008Q1

REPORT INFORMATION
  Report Type: 
  Country: None (occurrence: None)
  Receive Date: 20080211
  Receipt Date: 20080206
  Transmission Date: 20080703
  Serious: Yes (Hospitalization)
  Sender: FDA-Public Use
  Company Number: GB-WYE-G01010708

PATIENT
  Sex: Male

DRUGS (1)
  1. EFFEXOR [Suspect]
     Route: 048
     Dates: start: 20080124

REACTIONS (2)
  - DIZZINESS [None]
  - SLEEP DISORDER [None]
